FAERS Safety Report 8573810-7 (Version None)
Quarter: 2012Q3

REPORT INFORMATION
  Report Type: 
  Country: None (occurrence: None)
  Receive Date: 20120806
  Receipt Date: 20110712
  Transmission Date: 20120928
  Serious: No
  Sender: FDA-Public Use
  Company Number: US-GLAXOSMITHKLINE-A0937032A

PATIENT
  Age: 63 Year
  Sex: Female

DRUGS (5)
  1. FLUTICASONE PROPIONATE [Suspect]
     Indication: EMPHYSEMA
     Route: 055
     Dates: start: 20090101
  2. LISINOPRIL [Concomitant]
  3. NEXIUM [Concomitant]
  4. VITAMIN TAB [Concomitant]
  5. CHEMOTHERAPY [Concomitant]

REACTIONS (3)
  - CANDIDIASIS [None]
  - DYSPHONIA [None]
  - VISION BLURRED [None]
